FAERS Safety Report 12934330 (Version 1)
Quarter: 2016Q4

REPORT INFORMATION
  Report Type: Spontaneous
  Country: BR (occurrence: BR)
  Receive Date: 20161111
  Receipt Date: 20161111
  Transmission Date: 20170207
  Serious: Yes (Other)
  Sender: FDA-Public Use
  Company Number: BR-SA-2016SA202592

PATIENT

DRUGS (1)
  1. RIFALDIN [Suspect]
     Active Substance: RIFAMPIN
     Route: 065

REACTIONS (1)
  - Drug dependence [Unknown]
